FAERS Safety Report 6385488-1 (Version None)
Quarter: 2009Q4

REPORT INFORMATION
  Report Type: 
  Country: None (occurrence: None)
  Receive Date: 20091002
  Receipt Date: 20080923
  Transmission Date: 20100525
  Serious: No
  Sender: FDA-Public Use
  Company Number: US-ASTRAZENECA-2008UW19899

PATIENT
  Age: 55 Year
  Sex: Female
  Weight: 70.3 kg

DRUGS (2)
  1. ARIMIDEX [Suspect]
     Indication: BREAST CANCER
     Route: 048
     Dates: start: 20070601
  2. EFFEXOR [Concomitant]

REACTIONS (3)
  - ARTHRALGIA [None]
  - MUSCULOSKELETAL STIFFNESS [None]
  - URINARY INCONTINENCE [None]
